FAERS Safety Report 14928157 (Version 1)
Quarter: 2018Q2

REPORT INFORMATION
  Report Type: Spontaneous
  Country: JP (occurrence: JP)
  Receive Date: 20180523
  Receipt Date: 20180523
  Transmission Date: 20180711
  Serious: Yes (Life-Threatening, Other)
  Sender: FDA-Public Use
  Company Number: JP-AMGEN-JPNSP2018069250

PATIENT

DRUGS (1)
  1. PRALIA [Suspect]
     Active Substance: DENOSUMAB
     Indication: OSTEOPOROSIS
     Dosage: 60 MG, SINGLE
     Route: 058

REACTIONS (4)
  - Hypocalcaemia [Recovered/Resolved]
  - Renal impairment [Unknown]
  - Cardiac failure [Recovered/Resolved]
  - Pulmonary oedema [Recovered/Resolved]
